FAERS Safety Report 17101628 (Version 1)
Quarter: 2019Q4

REPORT INFORMATION
  Report Type: Spontaneous
  Country: CN (occurrence: CN)
  Receive Date: 20191202
  Receipt Date: 20191202
  Transmission Date: 20200122
  Serious: Yes (Death)
  Sender: FDA-Public Use
  Company Number: CN-FRESENIUS KABI-FK201913229

PATIENT
  Age: 50 Year
  Sex: Female

DRUGS (12)
  1. METHYLPREDNISOLONE (MANUFACTURER UNKNOWN) [Suspect]
     Active Substance: METHYLPREDNISOLONE
     Route: 041
  2. BETAMETHASONE. [Suspect]
     Active Substance: BETAMETHASONE
     Indication: TOXIC EPIDERMAL NECROLYSIS
     Route: 030
  3. METHYLPREDNISOLONE (MANUFACTURER UNKNOWN) [Suspect]
     Active Substance: METHYLPREDNISOLONE
     Indication: STEVENS-JOHNSON SYNDROME
     Route: 041
  4. METHYLPREDNISOLONE (MANUFACTURER UNKNOWN) [Suspect]
     Active Substance: METHYLPREDNISOLONE
     Route: 041
  5. LINEZOLID (MANUFACTURER UNKNOWN) [Suspect]
     Active Substance: LINEZOLID
     Indication: ANTI-INFECTIVE THERAPY
     Dosage: UNKNOWN
     Route: 065
  6. CEFTAZIDIME. [Suspect]
     Active Substance: CEFTAZIDIME
     Indication: ANTIBIOTIC PROPHYLAXIS
     Dosage: UNKNOWN
     Route: 065
  7. METHYLPREDNISOLONE (MANUFACTURER UNKNOWN) [Suspect]
     Active Substance: METHYLPREDNISOLONE
     Route: 041
  8. METHYLPREDNISOLONE (MANUFACTURER UNKNOWN) [Suspect]
     Active Substance: METHYLPREDNISOLONE
     Route: 041
  9. METHYLPREDNISOLONE (MANUFACTURER UNKNOWN) [Suspect]
     Active Substance: METHYLPREDNISOLONE
     Route: 041
  10. ETANERCEPT [Suspect]
     Active Substance: ETANERCEPT
     Indication: TOXIC EPIDERMAL NECROLYSIS
     Route: 058
  11. IMMUNOGLOBULIN HUMAN NORMAL [Concomitant]
     Active Substance: HUMAN IMMUNOGLOBULIN G
     Indication: STEVENS-JOHNSON SYNDROME
     Dosage: UNKNOWN
     Route: 065
  12. METHYLPREDNISOLONE (MANUFACTURER UNKNOWN) [Suspect]
     Active Substance: METHYLPREDNISOLONE
     Route: 041

REACTIONS (2)
  - Aspergillus infection [Fatal]
  - Toxic epidermal necrolysis [Fatal]
